FAERS Safety Report 9608169 (Version 2)
Quarter: 2013Q4

REPORT INFORMATION
  Report Type: Spontaneous
  Country: US (occurrence: US)
  Receive Date: 20131009
  Receipt Date: 20131009
  Transmission Date: 20140711
  Serious: No
  Sender: FDA-Public Use
  Company Number: US-PURDUE-USA-2012-0094017

PATIENT
  Age: 62 Year
  Sex: Female
  Weight: 62.59 kg

DRUGS (11)
  1. BUTRANS [Suspect]
     Indication: BACK PAIN
     Dosage: 5 MCG, WEEKLY
     Route: 062
     Dates: start: 20120919
  2. BUTRANS [Suspect]
     Indication: NECK PAIN
     Dosage: 10 MCG, WEEKLY
     Route: 062
  3. BUTRANS [Suspect]
     Indication: FIBROMYALGIA
     Dosage: 20 MCG, WEEKLY
     Route: 062
     Dates: start: 20120929, end: 20121001
  4. LEVOTHYROXINE [Concomitant]
  5. LAMOTRIGINE [Concomitant]
  6. KLONOPIN [Concomitant]
  7. DOXEPIN [Concomitant]
  8. TIZANIDINE [Concomitant]
  9. HYDROCODONE BITARTRATE AND ACETAMINOPHEN [Concomitant]
  10. IMITREX                            /01044801/ [Concomitant]
  11. WELLBUTRIN [Concomitant]

REACTIONS (6)
  - Sensation of heaviness [Unknown]
  - Drug ineffective [Unknown]
  - Hypersomnia [Recovered/Resolved]
  - Somnolence [Recovered/Resolved]
  - Pain [Unknown]
  - Feeling of relaxation [Recovered/Resolved]
